FAERS Safety Report 10094085 (Version 2)
Quarter: 2014Q2

REPORT INFORMATION
  Report Type: Report from Study
  Country: FR (occurrence: FR)
  Receive Date: 20140422
  Receipt Date: 20140422
  Transmission Date: 20141212
  Serious: Yes (Hospitalization)
  Sender: FDA-Public Use
  Company Number: FR-ROCHE-1161315

PATIENT
  Age: 50 Year
  Sex: Female

DRUGS (23)
  1. RITUXIMAB [Suspect]
     Indication: RHEUMATOID ARTHRITIS
     Dosage: DAY 1
     Route: 042
     Dates: start: 20061208
  2. RITUXIMAB [Suspect]
     Dosage: D15
     Route: 042
     Dates: start: 20061222
  3. RITUXIMAB [Suspect]
     Dosage: D1
     Route: 042
     Dates: start: 20071204
  4. RITUXIMAB [Suspect]
     Dosage: D1
     Route: 042
     Dates: start: 20080506
  5. RITUXIMAB [Suspect]
     Dosage: D15
     Route: 042
     Dates: start: 20080521
  6. AZATHIOPRINE [Concomitant]
     Route: 065
  7. CORTANCYL [Concomitant]
     Route: 065
  8. CORTANCYL [Concomitant]
     Route: 065
  9. CORTANCYL [Concomitant]
     Route: 065
  10. APRANAX [Concomitant]
     Route: 065
  11. MOPRAL (FRANCE) [Concomitant]
  12. MYOLASTAN [Concomitant]
  13. IMOVANE [Concomitant]
  14. DOLIPRANE [Concomitant]
  15. ATARAX (FRANCE) [Concomitant]
  16. FORLAX [Concomitant]
  17. EFFEXOR [Concomitant]
  18. NEURONTIN (FRANCE) [Concomitant]
  19. OXYNORM [Concomitant]
  20. OXYCONTIN [Concomitant]
  21. IMUREL [Concomitant]
  22. METHYLPREDNISOLONE [Concomitant]
     Route: 065
  23. PARACETAMOL [Concomitant]

REACTIONS (18)
  - Infusion related reaction [Recovered/Resolved]
  - Pyrexia [Recovered/Resolved]
  - Pyrexia [Recovered/Resolved]
  - Urinary tract infection [Unknown]
  - Malaise [Not Recovered/Not Resolved]
  - Fall [Unknown]
  - Head injury [Not Recovered/Not Resolved]
  - Vomiting [Recovered/Resolved]
  - Anxiety [Not Recovered/Not Resolved]
  - Diarrhoea [Recovered/Resolved]
  - Tooth disorder [Recovered/Resolved]
  - Tooth abscess [Recovered/Resolved]
  - Anaemia [Not Recovered/Not Resolved]
  - Fungal infection [Not Recovered/Not Resolved]
  - Urinary tract infection [Recovered/Resolved]
  - Renal colic [Recovered/Resolved]
  - Fungal skin infection [Recovered/Resolved]
  - Hypertension [Recovered/Resolved]
